FAERS Safety Report 23523170 (Version 1)
Quarter: 2024Q1

REPORT INFORMATION
  Report Type: Report from Study
  Country: CA (occurrence: CA)
  Receive Date: 20240214
  Receipt Date: 20240214
  Transmission Date: 20240410
  Serious: Yes (Hospitalization, Other)
  Sender: FDA-Public Use
  Company Number: CA-SANDOZ-SDZ2024CA013887

PATIENT
  Sex: Female

DRUGS (1)
  1. HYRIMOZ [Suspect]
     Active Substance: ADALIMUMAB-ADAZ
     Indication: Rheumatoid arthritis
     Dosage: 40 MG
     Route: 058

REACTIONS (4)
  - Urosepsis [Not Recovered/Not Resolved]
  - Hospitalisation [Not Recovered/Not Resolved]
  - Cellulitis [Not Recovered/Not Resolved]
  - Product dose omission issue [Unknown]
